FAERS Safety Report 25075882 (Version 2)
Quarter: 2025Q3

REPORT INFORMATION
  Report Type: Report from Study
  Country: US (occurrence: US)
  Receive Date: 20250313
  Receipt Date: 20250803
  Transmission Date: 20251021
  Serious: Yes (Hospitalization, Other)
  Sender: ALEXION PHARMACEUTICALS
  Company Number: US-AstraZeneca-CH-00785227A

PATIENT
  Age: 70 Year
  Sex: Male
  Weight: 86.5 kg

DRUGS (13)
  1. TEZEPELUMAB [Suspect]
     Active Substance: TEZEPELUMAB
     Route: 065
  2. TEZEPELUMAB [Suspect]
     Active Substance: TEZEPELUMAB
  3. ALBUTEROL [Concomitant]
     Active Substance: ALBUTEROL
  4. AMLODIPINE [Concomitant]
     Active Substance: AMLODIPINE BESYLATE
  5. ROBAXIN [Concomitant]
     Active Substance: METHOCARBAMOL
  6. CLOBETASOL [Concomitant]
     Active Substance: CLOBETASOL
  7. FLONASE [Concomitant]
     Active Substance: FLUTICASONE PROPIONATE
  8. HYDRALAZINE [Concomitant]
     Active Substance: HYDRALAZINE HYDROCHLORIDE
  9. LOSARTAN [Concomitant]
     Active Substance: LOSARTAN
  10. ONDANSETRON [Concomitant]
     Active Substance: ONDANSETRON
  11. SUMATRIPTAN [Concomitant]
     Active Substance: SUMATRIPTAN
  12. TRAMADOL [Concomitant]
     Active Substance: TRAMADOL
  13. CETIRIZINE HYDROCHLORIDE [Concomitant]
     Active Substance: CETIRIZINE HYDROCHLORIDE

REACTIONS (31)
  - Asthma [Unknown]
  - Cough [Unknown]
  - Upper-airway cough syndrome [Unknown]
  - Overweight [Unknown]
  - Wheezing [Unknown]
  - Productive cough [Unknown]
  - Obstructive airways disorder [Unknown]
  - Sleep apnoea syndrome [Unknown]
  - Dyspnoea [Unknown]
  - Snoring [Unknown]
  - Insomnia [Unknown]
  - Ehlers-Danlos syndrome [Unknown]
  - Hypertension [Unknown]
  - Gout [Unknown]
  - Hyperlipidaemia [Unknown]
  - Back pain [Unknown]
  - Coronary artery disease [Unknown]
  - Generalised anxiety disorder [Unknown]
  - Diverticulum intestinal [Unknown]
  - Parathyroid hormone-related protein [Unknown]
  - Prostatitis [Unknown]
  - Steatohepatitis [Unknown]
  - Bronchial secretion retention [Unknown]
  - Acquired ATTR amyloidosis [Unknown]
  - Nausea [Unknown]
  - Eosinophil count [Unknown]
  - Eosinopenia [Unknown]
  - Emphysema [Unknown]
  - Pneumonitis [Unknown]
  - Symptom recurrence [Unknown]
  - Albumin urine present [Unknown]
